FAERS Safety Report 7644825-8 (Version None)
Quarter: 2011Q3

REPORT INFORMATION
  Report Type: 
  Country: None (occurrence: None)
  Receive Date: 20110729
  Receipt Date: 20110718
  Transmission Date: 20111222
  Serious: Yes (Other)
  Sender: FDA-Public Use
  Company Number: US-JNJFOC-20110707608

PATIENT
  Sex: Female
  Weight: 77.11 kg

DRUGS (14)
  1. MAXALT [Concomitant]
     Indication: MIGRAINE
     Route: 048
  2. CLARITIN [Concomitant]
     Indication: MULTIPLE ALLERGIES
     Route: 048
  3. MOBIC [Concomitant]
     Indication: PAIN
     Route: 048
  4. NORCO [Concomitant]
     Indication: PAIN
     Dosage: 7.5/325MG AS NEEDED
     Route: 048
  5. FOLIC ACID [Concomitant]
     Indication: PSORIATIC ARTHROPATHY
     Route: 048
  6. PROTONIX [Concomitant]
     Indication: GASTROOESOPHAGEAL REFLUX DISEASE
     Route: 048
  7. REMICADE [Suspect]
     Indication: PSORIATIC ARTHROPATHY
     Route: 042
     Dates: start: 20050101
  8. DIOVAN [Concomitant]
     Indication: HYPERTENSION
     Route: 048
  9. ELAVIL [Concomitant]
     Indication: HYPERTENSION
     Dosage: HALF STRENGTH
     Route: 048
  10. LOVASTATIN [Concomitant]
     Indication: BLOOD CHOLESTEROL
     Route: 048
  11. SOMA [Concomitant]
     Indication: MUSCLE SPASMS
     Route: 048
  12. LUNESTA [Concomitant]
     Indication: SLEEP DISORDER
     Dosage: AS NEEDED HALF STRENGTH
     Route: 048
  13. METHOTREXATE [Concomitant]
     Indication: PSORIATIC ARTHROPATHY
     Dosage: STRENGTH: 2.5MG
     Route: 048
  14. HYDROCHLOROTHIAZIDE [Concomitant]
     Indication: HYPERTENSION
     Route: 048

REACTIONS (16)
  - ROTATOR CUFF SYNDROME [None]
  - URINARY TRACT INFECTION [None]
  - INTERVERTEBRAL DISC PROTRUSION [None]
  - CUSHING'S SYNDROME [None]
  - MUSCULOSKELETAL DISORDER [None]
  - PELVIC PAIN [None]
  - WEIGHT INCREASED [None]
  - GAIT DISTURBANCE [None]
  - FALL [None]
  - ARTHRALGIA [None]
  - CATARACT [None]
  - GLAUCOMA [None]
  - FUNGAL SKIN INFECTION [None]
  - VULVOVAGINAL MYCOTIC INFECTION [None]
  - OSTEOPOROSIS [None]
  - DRUG INEFFECTIVE [None]
